FAERS Safety Report 11585401 (Version 1)
Quarter: 2015Q4

REPORT INFORMATION
  Report Type: Spontaneous
  Country: US (occurrence: US)
  Receive Date: 20151001
  Receipt Date: 20151001
  Transmission Date: 20160304
  Serious: Yes (Life-Threatening)
  Sender: FDA-Public Use
  Company Number: US-BANPHARM-20154246

PATIENT
  Age: 62 Year
  Sex: Male

DRUGS (9)
  1. HEPARIN [Concomitant]
     Active Substance: HEPARIN SODIUM
     Dosage: DF 5000 IE, Q8H,
     Route: 058
  2. FAMOTIDINE. [Concomitant]
     Active Substance: FAMOTIDINE
     Dosage: DF 20MG, BID,
     Route: 048
  3. POTASSIUM PHOSPHATE [Concomitant]
     Active Substance: POTASSIUM PHOSPHATE
     Dosage: DF 500MG, Q8H,
     Route: 048
  4. DOCUSATE SODIUM. [Concomitant]
     Active Substance: DOCUSATE SODIUM
     Dosage: DF 250MG, BID,
     Route: 048
  5. LEVETIRACEPAM [Concomitant]
     Dosage: DF 1000MG, BID,
     Route: 048
  6. SODIUM PHOSPHATE [Concomitant]
     Active Substance: SODIUM PHOSPHATE
     Dosage: DF 500MG, Q8H,
     Route: 048
  7. NIMODIPINE UNKNOWN [Suspect]
     Active Substance: NIMODIPINE
     Dosage: DF 60MG, Q4H,
     Route: 048
  8. ATORVASTATIN [Concomitant]
     Active Substance: ATORVASTATIN
     Dosage: DF 80MG, QD,
     Route: 048
  9. NIMODIPINE UNKNOWN [Suspect]
     Active Substance: NIMODIPINE
     Dosage: DF 30MG, Q2H,
     Route: 048

REACTIONS (1)
  - Hypoxia [Recovered/Resolved]
